FAERS Safety Report 20470715 (Version 1)
Quarter: 2022Q1

REPORT INFORMATION
  Report Type: Report from Study
  Country: DE (occurrence: DE)
  Receive Date: 20220214
  Receipt Date: 20220214
  Transmission Date: 20220424
  Serious: Yes (Other)
  Sender: FDA-Public Use
  Company Number: DE-SHIRE-DE201945812

PATIENT
  Age: 60 Year
  Sex: Male

DRUGS (13)
  1. TEDUGLUTIDE [Suspect]
     Active Substance: TEDUGLUTIDE
     Indication: Short-bowel syndrome
     Dosage: 3.750 MILLIGRAM, QD
     Route: 065
     Dates: start: 20170228, end: 201909
  2. TEDUGLUTIDE [Suspect]
     Active Substance: TEDUGLUTIDE
     Indication: Short-bowel syndrome
     Dosage: 3.750 MILLIGRAM, QD
     Route: 065
     Dates: start: 20170228, end: 201909
  3. TEDUGLUTIDE [Suspect]
     Active Substance: TEDUGLUTIDE
     Indication: Short-bowel syndrome
     Dosage: 3.750 MILLIGRAM, QD
     Route: 065
     Dates: start: 20170228, end: 201909
  4. TEDUGLUTIDE [Suspect]
     Active Substance: TEDUGLUTIDE
     Indication: Short-bowel syndrome
     Dosage: 3.750 MILLIGRAM, QD
     Route: 065
     Dates: start: 20170228, end: 201909
  5. TEDUGLUTIDE [Suspect]
     Active Substance: TEDUGLUTIDE
     Dosage: 3.600 MILLIGRAM, QD
     Route: 065
     Dates: start: 201909
  6. TEDUGLUTIDE [Suspect]
     Active Substance: TEDUGLUTIDE
     Dosage: 3.600 MILLIGRAM, QD
     Route: 065
     Dates: start: 201909
  7. TEDUGLUTIDE [Suspect]
     Active Substance: TEDUGLUTIDE
     Dosage: 3.600 MILLIGRAM, QD
     Route: 065
     Dates: start: 201909
  8. TEDUGLUTIDE [Suspect]
     Active Substance: TEDUGLUTIDE
     Dosage: 3.600 MILLIGRAM, QD
     Route: 065
     Dates: start: 201909
  9. METAMIZOL [Concomitant]
     Active Substance: METAMIZOLE SODIUM
     Dosage: 500 MILLIGRAM
     Route: 048
     Dates: start: 202005
  10. Carmen [Concomitant]
     Dosage: 10 MILLIGRAM, QD
     Route: 048
     Dates: start: 201910, end: 202003
  11. POTASSIUM CARBONATE [Concomitant]
     Active Substance: POTASSIUM CARBONATE
     Dosage: UNK
     Route: 048
     Dates: start: 201906, end: 201910
  12. Kalinor [Concomitant]
     Indication: Hypokalaemia
     Dosage: 600 MILLIGRAM, BID
     Route: 048
     Dates: start: 201910
  13. Kalinor [Concomitant]
     Indication: Prophylaxis

REACTIONS (2)
  - Hyperkalaemia [Unknown]
  - Lipase increased [Not Recovered/Not Resolved]

NARRATIVE: CASE EVENT DATE: 20180901
